FAERS Safety Report 11790296 (Version 3)
Quarter: 2019Q1

REPORT INFORMATION
  Report Type: Spontaneous
  Country: US (occurrence: US)
  Receive Date: 20151201
  Receipt Date: 20190103
  Transmission Date: 20190417
  Serious: Yes (Hospitalization, Other)
  Sender: FDA-Public Use
  Company Number: US-ASTRAZENECA-2015SF08898

PATIENT
  Age: 28257 Day
  Sex: Female

DRUGS (4)
  1. BRILINTA [Suspect]
     Active Substance: TICAGRELOR
     Indication: STENT PLACEMENT
     Route: 048
     Dates: start: 20151106, end: 20181126
  2. BRILINTA [Suspect]
     Active Substance: TICAGRELOR
     Indication: CORONARY ANGIOPLASTY
     Route: 048
     Dates: start: 20151106, end: 20181126
  3. BRILINTA [Suspect]
     Active Substance: TICAGRELOR
     Indication: ACUTE CORONARY SYNDROME
     Route: 048
     Dates: start: 20151106, end: 20181126
  4. ASPIRIN. [Concomitant]
     Active Substance: ASPIRIN
     Route: 048
     Dates: start: 2016

REACTIONS (9)
  - Speech disorder [Unknown]
  - Malaise [Unknown]
  - Anaemia [Unknown]
  - Dyspnoea [Unknown]
  - Off label use [Unknown]
  - Nephrolithiasis [Recovered/Resolved]
  - Nausea [Unknown]
  - Oxygen saturation decreased [Unknown]
  - Fatigue [Recovering/Resolving]

NARRATIVE: CASE EVENT DATE: 20151106
